FAERS Safety Report 21699149 (Version 1)
Quarter: 2022Q4

REPORT INFORMATION
  Report Type: Report from Study
  Country: IT (occurrence: IT)
  Receive Date: 20221208
  Receipt Date: 20221208
  Transmission Date: 20230113
  Serious: Yes (Other)
  Sender: FDA-Public Use
  Company Number: None

PATIENT
  Age: 16 Year
  Sex: Male

DRUGS (9)
  1. METHOTREXATE [Suspect]
     Active Substance: METHOTREXATE
     Indication: Non-Hodgkin^s lymphoma
     Dosage: 12 MG ON 24/08 AND 31/08/22
     Dates: start: 20220824, end: 20220831
  2. CYTARABINE [Suspect]
     Active Substance: CYTARABINE
     Indication: Non-Hodgkin^s lymphoma
     Dosage: 148 MG/DAY FROM DAY 24/08 TO DAY 27/08/22 148 MG/DAY FROM DAY 30/08 TO DAY 02/09/22
     Dates: start: 20220824, end: 20220902
  3. DECADRON [Concomitant]
     Active Substance: DEXAMETHASONE
     Dosage: 18 MG/DAY FROM DAY 18/07
     Dates: start: 20220718, end: 20220817
  4. CYCLOPHOSPHAMIDE [Suspect]
     Active Substance: CYCLOPHOSPHAMIDE
     Indication: Non-Hodgkin^s lymphoma
     Dosage: 1950 MG
     Dates: start: 20220822, end: 20220822
  5. ONCASPAR [Suspect]
     Active Substance: PEGASPARGASE
     Indication: Non-Hodgkin^s lymphoma
     Dosage: 3150 MG
     Dates: start: 20220725, end: 20220725
  6. PURINETHOL [Suspect]
     Active Substance: MERCAPTOPURINE
     Indication: Non-Hodgkin^s lymphoma
     Dosage: 50 MG/DAY
     Dates: start: 20220914
  7. THIOGUANINE ANHYDROUS [Suspect]
     Active Substance: THIOGUANINE ANHYDROUS
     Indication: Non-Hodgkin^s lymphoma
     Dosage: 114 MG/DAY
     Dates: start: 20220822, end: 20220902
  8. VINCRISTINE SULFATE [Suspect]
     Active Substance: VINCRISTINE SULFATE
     Indication: Non-Hodgkin^s lymphoma
     Dosage: 2 MG/DAY ON 25/07, 01/08, 08/08 AND 16/08/22
     Dates: start: 20220725, end: 20220816
  9. METHOTREXATE [Suspect]
     Active Substance: METHOTREXATE
     Indication: Non-Hodgkin^s lymphoma
     Dosage: 20 MG/DAY
     Dates: start: 20220914

REACTIONS (3)
  - Anaemia [Recovered/Resolved]
  - Hyperbilirubinaemia [Recovered/Resolved]
  - Leukopenia [Recovered/Resolved]

NARRATIVE: CASE EVENT DATE: 20220822
